FAERS Safety Report 6878138-9 (Version None)
Quarter: 2010Q2

REPORT INFORMATION
  Report Type: 
  Country: None (occurrence: None)
  Receive Date: 20100622
  Receipt Date: 20100414
  Transmission Date: 20101027
  Serious: No
  Sender: FDA-Public Use
  Company Number: 2010US000024

PATIENT
  Age: 78 Year
  Sex: Male

DRUGS (5)
  1. ENTEREG [Suspect]
     Indication: POSTOPERATIVE ILEUS
     Dosage: 12 MG; PO
     Route: 048
     Dates: start: 20100331, end: 20100404
  2. GLAUCOMA EYE DROPS [Concomitant]
  3. NEOMYCIN [Concomitant]
  4. ERYTHROMYCIN BASE [Concomitant]
  5. INVANZ [Concomitant]

REACTIONS (2)
  - RASH [None]
  - SKIN EXFOLIATION [None]
